FAERS Safety Report 21061702 (Version 1)
Quarter: 2022Q3

REPORT INFORMATION
  Report Type: Spontaneous
  Country: IL (occurrence: IL)
  Receive Date: 20220709
  Receipt Date: 20220709
  Transmission Date: 20221027
  Serious: Yes (Other)
  Sender: FDA-Public Use
  Company Number: IL-TEVAIL-2022-IL-2054185

PATIENT
  Age: 61 Year
  Sex: Female

DRUGS (2)
  1. METFORMIN [Suspect]
     Active Substance: METFORMIN HYDROCHLORIDE
     Indication: Epstein-Barr virus infection
     Dosage: 2 DOSAGE FORMS DAILY; 2 PILLS A DAY WITH FOOD
     Dates: start: 2022
  2. METFORMIN [Suspect]
     Active Substance: METFORMIN HYDROCHLORIDE
     Indication: Glucose tolerance impaired
     Dosage: ONE PILL EVERY 19 HOURS, LAST DOSE ADMINISTERED: 24-JUN-2022
     Dates: start: 202206

REACTIONS (8)
  - Adverse drug reaction [Unknown]
  - Product use in unapproved indication [Unknown]
  - Syncope [Recovered/Resolved]
  - Asthenia [Recovered/Resolved]
  - Palpitations [Recovered/Resolved]
  - Dyspnoea [Unknown]
  - Hepatic steatosis [Unknown]
  - Fear-related avoidance of activities [Unknown]

NARRATIVE: CASE EVENT DATE: 20220101
